FAERS Safety Report 7296911-2 (Version None)
Quarter: 2011Q1

REPORT INFORMATION
  Report Type: 
  Country: None (occurrence: None)
  Receive Date: 20110216
  Receipt Date: 20110208
  Transmission Date: 20110831
  Serious: Yes (Hospitalization, Other)
  Sender: FDA-Public Use
  Company Number: US-JNJFOC-20110203300

PATIENT
  Age: 84 Year
  Sex: Male

DRUGS (8)
  1. LOPERAMIDE [Suspect]
     Dosage: 2MG EVERY 6 HOURS
     Route: 065
  2. GANCICLOVIR [Concomitant]
     Indication: DIARRHOEA
     Dosage: 28-DAY COURSE
     Route: 042
  3. LOPERAMIDE [Suspect]
     Indication: DIARRHOEA
     Route: 065
  4. VALGANCICLOVIR HCL [Suspect]
     Indication: DIARRHOEA
     Dosage: FOR 21 DAYS
     Route: 048
  5. IMMUNE GLOBULIN NOS [Concomitant]
     Route: 042
  6. OCTREOTIDE ACETATE [Concomitant]
     Indication: DIARRHOEA
     Route: 058
  7. LOPERAMIDE [Suspect]
     Route: 065
  8. IMMUNE GLOBULIN NOS [Concomitant]
     Route: 042

REACTIONS (5)
  - ELECTROLYTE IMBALANCE [None]
  - MALNUTRITION [None]
  - DRUG INEFFECTIVE [None]
  - OVERDOSE [None]
  - ANAL INJURY [None]
